FAERS Safety Report 26189141 (Version 1)
Quarter: 2025Q4

REPORT INFORMATION
  Report Type: Spontaneous
  Country: US (occurrence: US)
  Receive Date: 20251223
  Receipt Date: 20251223
  Transmission Date: 20260118
  Serious: No
  Sender: AUROBINDO
  Company Number: US-AUROBINDO-AUR-APL-2025-013128

PATIENT
  Sex: Female

DRUGS (1)
  1. AMOXICILLIN [Suspect]
     Active Substance: AMOXICILLIN
     Indication: Sinusitis
     Dosage: UNK (TOOK THE MEDICINE IN THE MORNING)
     Route: 061

REACTIONS (1)
  - Abdominal pain upper [Unknown]
